FAERS Safety Report 6260281-9 (Version None)
Quarter: 2009Q3

REPORT INFORMATION
  Report Type: 
  Country: None (occurrence: None)
  Receive Date: 20090708
  Receipt Date: 20090629
  Transmission Date: 20100115
  Serious: Yes (Other)
  Sender: FDA-Public Use
  Company Number: US-GILEAD-2009-0022863

PATIENT

DRUGS (4)
  1. TRUVADA [Suspect]
     Route: 064
     Dates: start: 20090126, end: 20090224
  2. TRUVADA [Suspect]
     Route: 048
     Dates: start: 20090327
  3. RALTEGRAVIR [Concomitant]
     Route: 064
     Dates: start: 20090126, end: 20090224
  4. RALTEGRAVIR [Concomitant]
     Dates: start: 20090327

REACTIONS (1)
  - ULTRASOUND ANTENATAL SCREEN ABNORMAL [None]
